FAERS Safety Report 7278153-X (Version None)
Quarter: 2011Q1

REPORT INFORMATION
  Report Type: 
  Country: None (occurrence: None)
  Receive Date: 20110207
  Receipt Date: 20110201
  Transmission Date: 20110831
  Serious: Yes (Hospitalization)
  Sender: FDA-Public Use
  Company Number: A0878388A

PATIENT
  Age: 46 Year
  Sex: Male

DRUGS (2)
  1. AVANDARYL [Suspect]
     Indication: DIABETES MELLITUS
     Route: 048
     Dates: start: 20061107, end: 20070526
  2. AVANDIA [Suspect]
     Route: 048
     Dates: start: 20070601

REACTIONS (5)
  - MYOCARDIAL INFARCTION [None]
  - STENT PLACEMENT [None]
  - MYOCARDIAL ISCHAEMIA [None]
  - ANGINA UNSTABLE [None]
  - CORONARY ARTERY DISEASE [None]
